FAERS Safety Report 25261425 (Version 2)
Quarter: 2025Q2

REPORT INFORMATION
  Report Type: Report from Study
  Country: US (occurrence: US)
  Receive Date: 20250501
  Receipt Date: 20250622
  Transmission Date: 20250717
  Serious: Yes (Other)
  Sender: ABBVIE
  Company Number: US-ABBVIE-6257550

PATIENT
  Sex: Male

DRUGS (1)
  1. IMBRUVICA [Suspect]
     Active Substance: IBRUTINIB
     Indication: B-cell small lymphocytic lymphoma
     Route: 048
     Dates: start: 20180811

REACTIONS (7)
  - Nephrolithiasis [Unknown]
  - Coronary artery bypass [Unknown]
  - Unevaluable event [Unknown]
  - Implantable defibrillator insertion [Unknown]
  - Alopecia [Unknown]
  - Cystitis [Unknown]
  - Prostatomegaly [Unknown]
